FAERS Safety Report 8426527-3 (Version None)
Quarter: 2012Q2

REPORT INFORMATION
  Report Type: 
  Country: None (occurrence: None)
  Receive Date: 20120611
  Receipt Date: 20120605
  Transmission Date: 20120825
  Serious: Yes (Other)
  Sender: FDA-Public Use
  Company Number: CN-PFIZER INC-2012135157

PATIENT
  Age: 31 Year
  Sex: Male

DRUGS (1)
  1. VIAGRA [Suspect]
     Indication: PULMONARY ARTERIAL HYPERTENSION
     Dosage: UNK
     Route: 048
     Dates: start: 20100101

REACTIONS (1)
  - HAEMORRHAGE SUBCUTANEOUS [None]
